FAERS Safety Report 9241090 (Version 1)
Quarter: 2013Q2

REPORT INFORMATION
  Report Type: Spontaneous
  Country: US (occurrence: None)
  Receive Date: 20130418
  Receipt Date: 20130418
  Transmission Date: 20140414
  Serious: Yes (Hospitalization)
  Sender: FDA-Public Use
  Company Number: None

PATIENT
  Age: 76 Year
  Sex: Female

DRUGS (8)
  1. CEFTRIAXONE [Suspect]
     Indication: PNEUMONIA
     Route: 042
     Dates: start: 20121101, end: 20121108
  2. AZITHROMYCIN [Suspect]
     Indication: PNEUMONIA
     Route: 048
     Dates: start: 20121101, end: 20121107
  3. ASPIRIN [Concomitant]
  4. CLOPIDOGREL [Concomitant]
  5. CARVEDILOL [Concomitant]
  6. FAMOTIDINE [Concomitant]
  7. FUROSEMIDE [Concomitant]
  8. ISOSORBIDE MONONIATRATE [Concomitant]

REACTIONS (2)
  - Drug eruption [None]
  - Skin exfoliation [None]
